FAERS Safety Report 18913413 (Version 1)
Quarter: 2021Q1

REPORT INFORMATION
  Report Type: Spontaneous
  Country: US (occurrence: US)
  Receive Date: 20210218
  Receipt Date: 20210218
  Transmission Date: 20210420
  Serious: Yes (Other)
  Sender: FDA-Public Use
  Company Number: US-BAUSCH-BL-2021-004766

PATIENT
  Age: 61 Year
  Sex: Male
  Weight: 93.07 kg

DRUGS (1)
  1. FLUOROURACIL CREAM 5% [Suspect]
     Active Substance: FLUOROURACIL
     Indication: ACTINIC KERATOSIS
     Dosage: APPLIED TO 2 SPOTS ON HIS FACE AND ON HIS CHEST
     Route: 061
     Dates: start: 20210114

REACTIONS (6)
  - Application site scab [Not Recovered/Not Resolved]
  - Product lot number issue [Unknown]
  - Application site erythema [Not Recovered/Not Resolved]
  - Product use complaint [Unknown]
  - Application site haemorrhage [Not Recovered/Not Resolved]
  - Off label use [Unknown]

NARRATIVE: CASE EVENT DATE: 2021
